FAERS Safety Report 9152904 (Version 1)
Quarter: 2013Q1

REPORT INFORMATION
  Report Type: Spontaneous
  Country: CA (occurrence: CA)
  Receive Date: 20130124
  Receipt Date: 20130124
  Transmission Date: 20140127
  Serious: Yes (Other)
  Sender: FDA-Public Use
  Company Number: CA-RB-035328-11

PATIENT
  Age: 28 None
  Sex: Female

DRUGS (6)
  1. SUBUTEX [Suspect]
     Indication: DRUG DEPENDENCE
     Dosage: 8-16 MG DAILY
     Route: 048
     Dates: start: 20111212, end: 20120307
  2. NICOTINE [Suspect]
     Indication: PRODUCT USED FOR UNKNOWN INDICATION
     Dosage: SMOKED 12 CIGARETTES A DAY THROUGHOUT PREGNANCY
  3. CANNABIS SATIVA SUBSP. INDICA TOP [Suspect]
     Indication: PRODUCT USED FOR UNKNOWN INDICATION
     Dosage: SMOKED ALL THROUGHOUT PREGNANCY - AMOUNT NOT KNOWN
  4. VARIOUS OPIOIDS [Suspect]
     Indication: PRODUCT USED FOR UNKNOWN INDICATION
     Dosage: USED VARIOUS OPIOIDS THROUGHOUT PREGNANCY UNTIL 10-JAN-2012
     Dates: end: 20120110
  5. CIPRALEX [Concomitant]
     Route: 048
     Dates: start: 201112
  6. CIPRALEX [Concomitant]
     Indication: ANXIETY
     Route: 048
     Dates: start: 201112

REACTIONS (2)
  - Exposure during pregnancy [Recovered/Resolved]
  - Foetal growth restriction [Recovered/Resolved]
